FAERS Safety Report 14343634 (Version 4)
Quarter: 2018Q1

REPORT INFORMATION
  Report Type: Spontaneous
  Country: US (occurrence: US)
  Receive Date: 20180102
  Receipt Date: 20180220
  Transmission Date: 20180509
  Serious: Yes (Other)
  Sender: FDA-Public Use
  Company Number: US-EMD SERONO-9004490

PATIENT
  Age: 47 Year
  Sex: Female
  Weight: 45 kg

DRUGS (4)
  1. REBIF [Suspect]
     Active Substance: INTERFERON BETA-1A
     Route: 058
     Dates: end: 20171128
  2. REBIF [Suspect]
     Active Substance: INTERFERON BETA-1A
     Indication: MULTIPLE SCLEROSIS
     Route: 058
     Dates: start: 201705
  3. REBIF [Suspect]
     Active Substance: INTERFERON BETA-1A
     Route: 058
     Dates: start: 20170617
  4. REBIF [Suspect]
     Active Substance: INTERFERON BETA-1A
     Route: 058
     Dates: start: 20170802

REACTIONS (10)
  - Omphalitis [Unknown]
  - Pharyngitis [Unknown]
  - Central nervous system infection [Not Recovered/Not Resolved]
  - Eye infection [Unknown]
  - Weight decreased [Not Recovered/Not Resolved]
  - Pneumonia [Not Recovered/Not Resolved]
  - Neck mass [Not Recovered/Not Resolved]
  - Ear infection [Not Recovered/Not Resolved]
  - Rhinitis [Unknown]
  - Oesophageal mass [Not Recovered/Not Resolved]

NARRATIVE: CASE EVENT DATE: 201711
